FAERS Safety Report 7562492-9 (Version None)
Quarter: 2011Q2

REPORT INFORMATION
  Report Type: 
  Country: None (occurrence: None)
  Receive Date: 20110614
  Receipt Date: 20110609
  Transmission Date: 20111010
  Serious: Yes (Other)
  Sender: FDA-Public Use
  Company Number: A0930911A

PATIENT
  Age: 9 Year

DRUGS (1)
  1. UREA PEROXIDE [Suspect]

REACTIONS (1)
  - EAR HAEMORRHAGE [None]
